FAERS Safety Report 14922912 (Version 1)
Quarter: 2018Q2

REPORT INFORMATION
  Report Type: Spontaneous
  Country: None (occurrence: CN)
  Receive Date: 20180522
  Receipt Date: 20180522
  Transmission Date: 20180711
  Serious: Yes (Other)
  Sender: FDA-Public Use
  Company Number: CN-LUPIN PHARMACEUTICALS INC.-2018-03763

PATIENT
  Age: 46 Year
  Sex: Female

DRUGS (3)
  1. MONOSIALOTETRAHEXOSYLGANGLIOSIDE [Suspect]
     Active Substance: GANGLIOSIDE GM1
     Indication: PRODUCT USED FOR UNKNOWN INDICATION
     Dosage: UNK, (2 ML:20 MG) 100 MG
     Route: 042
  2. POTASSIUM CHLORIDE. [Suspect]
     Active Substance: POTASSIUM CHLORIDE
     Indication: PRODUCT USED FOR UNKNOWN INDICATION
     Dosage: UNK
     Route: 042
  3. SODIUM CHLORIDE. [Suspect]
     Active Substance: SODIUM CHLORIDE
     Indication: PRODUCT USED FOR UNKNOWN INDICATION
     Dosage: UNK, 500 ML
     Route: 042

REACTIONS (1)
  - Hypersensitivity [Recovering/Resolving]
